FAERS Safety Report 6348185-4 (Version None)
Quarter: 2009Q3

REPORT INFORMATION
  Report Type: 
  Country: None (occurrence: None)
  Receive Date: 20090908
  Receipt Date: 20090824
  Transmission Date: 20100115
  Serious: Yes (Hospitalization)
  Sender: FDA-Public Use
  Company Number: ADR18502009

PATIENT
  Age: 59 Year
  Sex: Female

DRUGS (5)
  1. CIPROFLOXACIN [Suspect]
     Indication: PYREXIA
     Dosage: 1000MG DAY FOR 5 DAYS ORAL, 400MG DAY FOR 10 DAYS INTRAVENOUS
     Route: 048
  2. LAMIVUDINE [Concomitant]
  3. SPIRONOLACTONE [Concomitant]
  4. FUROSEMIDE [Concomitant]
  5. LACTULOSE [Concomitant]

REACTIONS (1)
  - BALLISMUS [None]
